FAERS Safety Report 19027781 (Version 1)
Quarter: 2021Q1

REPORT INFORMATION
  Report Type: Spontaneous
  Country: US (occurrence: US)
  Receive Date: 20210319
  Receipt Date: 20210319
  Transmission Date: 20210420
  Serious: Yes (Hospitalization)
  Sender: FDA-Public Use
  Company Number: US-STRIDES ARCOLAB LIMITED-2021SP003295

PATIENT
  Age: 17 Year
  Sex: Female

DRUGS (14)
  1. DOXORUBICIN [Suspect]
     Active Substance: DOXORUBICIN
     Indication: VANISHING BILE DUCT SYNDROME
     Dosage: UNK, CYCLICAL ATTEMPT WAS MADE TO INCREASE THE DOSE TO 75%
     Route: 065
  2. BLEOMYCIN [Suspect]
     Active Substance: BLEOMYCIN SULFATE
     Indication: HODGKIN^S DISEASE
     Dosage: UNK, CYCLICAL WAS GIVEN AT 50%
     Route: 065
  3. ETOPOSIDE. [Suspect]
     Active Substance: ETOPOSIDE
     Dosage: UNK, CYCLICAL ON A 4?5 WEEK SCHEDULE
     Route: 065
  4. CYCLOPHOSPHAMIDE. [Suspect]
     Active Substance: CYCLOPHOSPHAMIDE
     Indication: HODGKIN^S DISEASE
     Dosage: UNK, CYCLICAL WAS GIVEN AT 50%
     Route: 065
  5. DOXORUBICIN [Suspect]
     Active Substance: DOXORUBICIN
     Indication: HODGKIN^S DISEASE
     Dosage: UNK, CYCLICAL WAS GIVEN AT 50%
     Route: 065
  6. ETOPOSIDE. [Suspect]
     Active Substance: ETOPOSIDE
     Indication: HODGKIN^S DISEASE
     Dosage: UNK, CYCLICAL WAS GIVEN AT 50%
     Route: 065
  7. PREDNISOLONE. [Suspect]
     Active Substance: PREDNISOLONE
     Indication: HODGKIN^S DISEASE
     Dosage: UNK, CYCLICAL WAS GIVEN AT 100%
     Route: 065
  8. CYCLOPHOSPHAMIDE. [Suspect]
     Active Substance: CYCLOPHOSPHAMIDE
     Dosage: UNK, CYCLICAL ON A 4?5 WEEK SCHEDULE
     Route: 065
  9. DOXORUBICIN [Suspect]
     Active Substance: DOXORUBICIN
     Dosage: UNK, CYCLICAL ON A 4?5 WEEK SCHEDULE
     Route: 065
  10. BLEOMYCIN [Suspect]
     Active Substance: BLEOMYCIN SULFATE
     Indication: VANISHING BILE DUCT SYNDROME
     Dosage: UNK, CYCLICAL ATTEMPT WAS MADE TO INCREASE THE DOSE TO 75%
     Route: 065
  11. CYCLOPHOSPHAMIDE. [Suspect]
     Active Substance: CYCLOPHOSPHAMIDE
     Indication: VANISHING BILE DUCT SYNDROME
     Dosage: UNK, CYCLICAL ATTEMPT WAS MADE TO INCREASE THE DOSE TO 75%
     Route: 065
  12. BLEOMYCIN [Suspect]
     Active Substance: BLEOMYCIN SULFATE
     Dosage: UNK, CYCLICAL ON A 4?5 WEEK SCHEDULE
     Route: 065
  13. ETOPOSIDE. [Suspect]
     Active Substance: ETOPOSIDE
     Indication: VANISHING BILE DUCT SYNDROME
     Dosage: UNK, CYCLICAL ATTEMPT WAS MADE TO INCREASE THE DOSE TO 75%
     Route: 065
  14. PREDNISOLONE. [Suspect]
     Active Substance: PREDNISOLONE
     Indication: VANISHING BILE DUCT SYNDROME
     Dosage: UNK, CYCLICAL ON A 4?5 WEEK SCHEDULE
     Route: 065

REACTIONS (3)
  - Toxicity to various agents [Unknown]
  - Blood bilirubin increased [Recovered/Resolved]
  - Bilirubin conjugated increased [Recovered/Resolved]
